FAERS Safety Report 9308577 (Version 1)
Quarter: 2013Q2

REPORT INFORMATION
  Report Type: Spontaneous
  Country: FI (occurrence: FI)
  Receive Date: 20130524
  Receipt Date: 20130524
  Transmission Date: 20140414
  Serious: Yes (Other)
  Sender: FDA-Public Use
  Company Number: FI-ELI_LILLY_AND_COMPANY-FI201305005364

PATIENT
  Sex: Female

DRUGS (12)
  1. FORSTEO [Suspect]
     Indication: OSTEOPOROSIS
     Dosage: 20 UG, QD
     Dates: start: 20130111
  2. DUROGESIC [Concomitant]
     Indication: PAIN
  3. MAREVAN [Concomitant]
     Indication: ANTICOAGULANT THERAPY
     Dosage: 5 MG, UNKNOWN
  4. MEDROL [Concomitant]
     Indication: RHEUMATIC DISORDER
     Dosage: 4 MG, UNKNOWN
  5. SOMAC [Concomitant]
     Dosage: 40 MG, QD
  6. KALCIPOS-D [Concomitant]
  7. EMCONCOR [Concomitant]
     Dosage: 5 MG, QD
  8. COZAAR [Concomitant]
     Dosage: 50 MG, BID
  9. THYROXIN [Concomitant]
     Indication: HYPOTHYROIDISM
     Dosage: 0.1 MG, QD
  10. OBSIDAN [Concomitant]
     Indication: ANAEMIA
  11. FURESIS [Concomitant]
     Indication: DIURETIC THERAPY
     Dosage: 20 MG, QD
  12. SPIRIX [Concomitant]
     Indication: DIURETIC THERAPY
     Dosage: 25 MG, QD

REACTIONS (1)
  - Cardiac failure [Recovering/Resolving]
